FAERS Safety Report 4839812-9 (Version None)
Quarter: 2005Q4

REPORT INFORMATION
  Report Type: 
  Country: None (occurrence: None)
  Receive Date: 20051129
  Receipt Date: 20050928
  Transmission Date: 20060501
  Serious: No
  Sender: FDA-Public Use
  Company Number: 2005-03647

PATIENT
  Age: 57 Year
  Sex: Female
  Weight: 110.9 kg

DRUGS (5)
  1. BUPROPION HCL [Suspect]
     Indication: DEPRESSION
     Dosage: 150MG TWICE PER DAY
     Route: 048
     Dates: start: 20040101, end: 20050927
  2. EFFEXOR [Suspect]
     Indication: DRUG USE FOR UNKNOWN INDICATION
     Dosage: 75MG UNKNOWN
     Route: 065
     Dates: end: 20050901
  3. ALLEGRA [Suspect]
     Route: 065
     Dates: end: 20050901
  4. ZYRTEC [Suspect]
     Dosage: 5MG PER DAY
     Route: 065
     Dates: end: 20050901
  5. UNKNOWN MEDICATION [Concomitant]
     Dates: end: 20050928

REACTIONS (1)
  - WEIGHT INCREASED [None]
